FAERS Safety Report 15499300 (Version 1)
Quarter: 2018Q4

REPORT INFORMATION
  Report Type: Spontaneous
  Country: TR (occurrence: TR)
  Receive Date: 20181015
  Receipt Date: 20181015
  Transmission Date: 20190205
  Serious: Yes (Hospitalization, Other)
  Sender: FDA-Public Use
  Company Number: TR-GLAXOSMITHKLINE-TR2016200592

PATIENT
  Age: 9 Year
  Sex: Female

DRUGS (1)
  1. DICLOFENAC [Suspect]
     Active Substance: DICLOFENAC
     Indication: HEADACHE
     Dosage: 2 DF, UNK
     Route: 065

REACTIONS (15)
  - Rash maculo-papular [Recovered/Resolved]
  - Fatigue [Recovered/Resolved]
  - Leukopenia [Recovered/Resolved]
  - Lymphopenia [Recovered/Resolved]
  - Product use in unapproved indication [Unknown]
  - Pyrexia [Recovered/Resolved]
  - Rash [Recovered/Resolved]
  - Ocular hyperaemia [Recovered/Resolved]
  - Dermatitis bullous [Recovered/Resolved]
  - Conjunctival hyperaemia [Recovered/Resolved]
  - Oral disorder [Recovered/Resolved]
  - Dehydration [Recovered/Resolved]
  - Genital lesion [Recovered/Resolved]
  - Purulent discharge [Recovered/Resolved]
  - Toxic epidermal necrolysis [Recovered/Resolved]
